FAERS Safety Report 23157539 (Version 2)
Quarter: 2023Q4

REPORT INFORMATION
  Report Type: Report from Study
  Country: US (occurrence: US)
  Receive Date: 20231108
  Receipt Date: 20231115
  Transmission Date: 20240110
  Serious: Yes (Other)
  Sender: FDA-Public Use
  Company Number: US-UCBSA-2023052648

PATIENT
  Age: 30 Year
  Sex: Male

DRUGS (5)
  1. BRIVARACETAM [Suspect]
     Active Substance: BRIVARACETAM
     Indication: Seizure
     Dosage: 200 MILLIGRAM, 2X/DAY (BID)
     Route: 048
  2. BRIVARACETAM [Suspect]
     Active Substance: BRIVARACETAM
     Dosage: 100 MILLIGRAM, 1 TABLET 2X/DAY (BID)
     Route: 048
     Dates: start: 20210607
  3. ALBUTEROL SULFATE [Concomitant]
     Active Substance: ALBUTEROL SULFATE
     Indication: Asthma
     Dosage: SUFFICIENT  6.7 GM,INHALE 1-2 PUFFS EVERY 4-6 HOURS AS NEEDED FOR ASTHMA
     Route: 045
     Dates: start: 20230810
  4. ACETAMINOPHEN\HYDROCODONE [Concomitant]
     Active Substance: ACETAMINOPHEN\HYDROCODONE
     Indication: Product used for unknown indication
     Dosage: 5-325 MG TAKE 1 TABLET EVERY 6 HOURS AS NEEDED
     Route: 048
     Dates: start: 20230412
  5. OXCARBAZEPINE [Concomitant]
     Active Substance: OXCARBAZEPINE
     Indication: Product used for unknown indication
     Dosage: 300 MILLIGRAM, 1TABLET  2X/DAY (BID)
     Route: 048
     Dates: start: 20230810

REACTIONS (3)
  - Seizure [Not Recovered/Not Resolved]
  - Joint dislocation [Not Recovered/Not Resolved]
  - Overdose [Unknown]

NARRATIVE: CASE EVENT DATE: 20230804
